FAERS Safety Report 23730968 (Version 1)
Quarter: 2024Q2

REPORT INFORMATION
  Report Type: Spontaneous
  Country: US (occurrence: US)
  Receive Date: 20240411
  Receipt Date: 20240411
  Transmission Date: 20240716
  Serious: Yes (Other)
  Sender: FDA-Public Use
  Company Number: US-MLMSERVICE-20240328-4919291-1

PATIENT
  Age: 38 Year
  Sex: Male

DRUGS (2)
  1. CLOZAPINE [Suspect]
     Active Substance: CLOZAPINE
     Indication: Schizoaffective disorder bipolar type
  2. CLOZAPINE [Suspect]
     Active Substance: CLOZAPINE
     Indication: Antisocial personality disorder

REACTIONS (1)
  - Eosinophilic myocarditis [Recovering/Resolving]
